FAERS Safety Report 8831324 (Version 1)
Quarter: 2012Q4

REPORT INFORMATION
  Report Type: Report from Study
  Country: CA (occurrence: CA)
  Receive Date: 20121009
  Receipt Date: 20121009
  Transmission Date: 20130627
  Serious: Yes (Hospitalization)
  Sender: FDA-Public Use
  Company Number: CA-JNJFOC-20120912853

PATIENT
  Age: 64 Year
  Sex: Female

DRUGS (6)
  1. REMICADE [Suspect]
     Indication: CROHN^S DISEASE
     Route: 042
  2. REMICADE [Suspect]
     Indication: CROHN^S DISEASE
     Route: 042
  3. VITAMIN B12 [Concomitant]
     Route: 065
  4. CALCIUM [Concomitant]
     Route: 065
  5. NEXIUM [Concomitant]
     Route: 065
  6. FERROUS SULPHATE [Concomitant]
     Route: 065

REACTIONS (7)
  - Intestinal operation [Unknown]
  - Diarrhoea [Unknown]
  - Asthenia [Unknown]
  - Abdominal distension [Recovering/Resolving]
  - Condition aggravated [Unknown]
  - Malaise [Unknown]
  - Pyrexia [Recovering/Resolving]
